FAERS Safety Report 6094520-4 (Version None)
Quarter: 2009Q1

REPORT INFORMATION
  Report Type: 
  Country: None (occurrence: None)
  Receive Date: 20090226
  Receipt Date: 20090218
  Transmission Date: 20090719
  Serious: Yes (Other)
  Sender: FDA-Public Use
  Company Number: AT-ABBOTT-08P-009-0491103-00

PATIENT
  Sex: Female
  Weight: 60 kg

DRUGS (4)
  1. HUMIRA [Suspect]
     Indication: COLITIS ULCERATIVE
     Dates: start: 20081031, end: 20081031
  2. HUMIRA [Suspect]
     Dates: start: 20081114, end: 20081114
  3. HUMIRA [Suspect]
     Dates: start: 20081203, end: 20081203
  4. HUMIRA [Suspect]
     Dates: start: 20081217, end: 20081217

REACTIONS (2)
  - GLAUCOMA [None]
  - OFF LABEL USE [None]
